FAERS Safety Report 12120269 (Version 1)
Quarter: 2016Q1

REPORT INFORMATION
  Report Type: Spontaneous
  Country: US (occurrence: US)
  Receive Date: 20160226
  Receipt Date: 20160226
  Transmission Date: 20160526
  Serious: Yes (Other)
  Sender: FDA-Public Use
  Company Number: US-THE MENTHOLATUM COMPANY-1048417

PATIENT
  Age: 35 Year
  Sex: Female
  Weight: 61.36 kg

DRUGS (1)
  1. OXY DAILY DEFENSE ADVANCED FACIAL CLEANSER ALOE CUCUMBER EXTRACT [Suspect]
     Active Substance: SALICYLIC ACID
     Indication: ACNE
     Route: 061
     Dates: start: 20160209, end: 20160209

REACTIONS (4)
  - Urticaria [None]
  - Dermatitis contact [Recovered/Resolved]
  - Rash macular [None]
  - Pruritus [None]

NARRATIVE: CASE EVENT DATE: 20160209
